FAERS Safety Report 5769476-1 (Version None)
Quarter: 2008Q2

REPORT INFORMATION
  Report Type: 
  Country: None (occurrence: None)
  Receive Date: 20080612
  Receipt Date: 20080326
  Transmission Date: 20081010
  Serious: No
  Sender: FDA-Public Use
  Company Number: US-ABBOTT-08P-163-0444640-00

PATIENT
  Sex: Female
  Weight: 90.8 kg

DRUGS (9)
  1. HUMIRA [Suspect]
     Indication: RHEUMATOID ARTHRITIS
     Route: 058
     Dates: start: 20070601, end: 20080101
  2. METFORMIN HCL [Concomitant]
     Indication: DIABETES MELLITUS
     Route: 048
     Dates: start: 20060101
  3. ASPIRIN [Concomitant]
     Indication: THROMBOSIS PROPHYLAXIS
     Dates: start: 20060101
  4. SIMVASTATIN [Concomitant]
     Indication: HYPERLIPIDAEMIA
     Dates: start: 20060101
  5. GABAPENTIN [Concomitant]
     Indication: FIBROMYALGIA
     Dates: start: 20060101
  6. ACETAMINOPHEN W/ CODEINE [Concomitant]
     Indication: PAIN
     Dates: start: 20060101
  7. TYLOX [Concomitant]
     Indication: PAIN
     Dates: start: 20060101
  8. PANTOPRAZOLE [Concomitant]
     Indication: GASTROOESOPHAGEAL REFLUX DISEASE
     Dates: start: 20060101
  9. FAMOTIDINE [Concomitant]
     Indication: GASTROOESOPHAGEAL REFLUX DISEASE
     Dates: start: 20060101

REACTIONS (3)
  - ARTHRALGIA [None]
  - MUSCLE SPASMS [None]
  - PAIN IN EXTREMITY [None]
